FAERS Safety Report 5422267-3 (Version None)
Quarter: 2007Q3

REPORT INFORMATION
  Report Type: 
  Country: None (occurrence: None)
  Receive Date: 20070817
  Receipt Date: 20070814
  Transmission Date: 20080115
  Serious: Yes (Hospitalization)
  Sender: FDA-Public Use
  Company Number: 2007080025

PATIENT
  Age: 58 Year
  Sex: Male
  Weight: 80 kg

DRUGS (8)
  1. ALLERGODIL [Suspect]
     Indication: RHINITIS
     Dosage: NASAL
     Route: 045
     Dates: start: 20070401, end: 20070511
  2. DESLORATADINE [Suspect]
     Indication: RHINITIS
     Dosage: ORAL
     Route: 048
     Dates: start: 20040401
  3. SOLACY [Suspect]
     Indication: RHINITIS
     Dosage: ORAL
     Route: 048
     Dates: start: 20040401
  4. CHONDROSULF [Suspect]
     Indication: OSTEOARTHRITIS
     Dosage: (3 DOSAGE FORMS, 1 IN 1 DAY), ORAL
     Route: 048
  5. INDAPAMIDE [Suspect]
     Indication: ILL-DEFINED DISORDER
     Dosage: ORAL
     Route: 048
     Dates: start: 20060815, end: 20070511
  6. INEXIUM (SEOMEPRAZOLE, MAGNESIUM) [Suspect]
     Indication: ILL-DEFINED DISORDER
     Dosage: 40 MG (40 MG, 1 IN 1 D), ORAL
     Route: 048
     Dates: start: 20070101
  7. ACTISOUFRE [Concomitant]
  8. FLECAINIDE ACETATE [Concomitant]

REACTIONS (4)
  - ANGIOIMMUNOBLASTIC T-CELL LYMPHOMA [None]
  - GINGIVAL BLEEDING [None]
  - HAEMATOMA [None]
  - PURPURA [None]
